FAERS Safety Report 22595397 (Version 3)
Quarter: 2023Q4

REPORT INFORMATION
  Report Type: Report from Study
  Country: US (occurrence: US)
  Receive Date: 20230613
  Receipt Date: 20231122
  Transmission Date: 20240109
  Serious: Yes (Hospitalization, Other)
  Sender: FDA-Public Use
  Company Number: US-BAYER-2023A063545

PATIENT
  Age: 86 Year
  Sex: Female
  Weight: 55 kg

DRUGS (17)
  1. ADEMPAS [Suspect]
     Active Substance: RIOCIGUAT
     Indication: Pulmonary arterial hypertension
     Dosage: UNK
     Route: 048
     Dates: start: 20220809
  2. ADEMPAS [Suspect]
     Active Substance: RIOCIGUAT
     Indication: Pulmonary arterial hypertension
     Dosage: 0.5 MG, BID
     Route: 048
  3. ADEMPAS [Suspect]
     Active Substance: RIOCIGUAT
     Indication: Pulmonary arterial hypertension
     Dosage: 1 MG, TID
     Route: 048
  4. ADEMPAS [Suspect]
     Active Substance: RIOCIGUAT
     Indication: Pulmonary arterial hypertension
     Dosage: 0.5 MG, TID
     Route: 048
  5. ADEMPAS [Suspect]
     Active Substance: RIOCIGUAT
     Indication: Pulmonary arterial hypertension
     Dosage: 1 MG, BID
     Route: 048
  6. ELIQUIS [Concomitant]
     Active Substance: APIXABAN
     Dosage: UNK
  7. FAMOTIDINE [Concomitant]
     Active Substance: FAMOTIDINE
  8. EZETIMIBE [Concomitant]
     Active Substance: EZETIMIBE
  9. TYLENOL [Concomitant]
     Active Substance: ACETAMINOPHEN
  10. JARDIANCE [Concomitant]
     Active Substance: EMPAGLIFLOZIN
  11. PANTOPRAZOLE [Concomitant]
     Active Substance: PANTOPRAZOLE
  12. METOLAZONE [Concomitant]
     Active Substance: METOLAZONE
  13. ASPIRIN [Concomitant]
     Active Substance: ASPIRIN
  14. LOSARTAN [Concomitant]
     Active Substance: LOSARTAN
  15. SERTRALINE [Concomitant]
     Active Substance: SERTRALINE HYDROCHLORIDE
  16. AMIODARONE [Concomitant]
     Active Substance: AMIODARONE
  17. METOPROLOL [Concomitant]
     Active Substance: METOPROLOL

REACTIONS (19)
  - Loss of consciousness [None]
  - Fall [None]
  - Syncope [None]
  - Loss of consciousness [None]
  - Arthralgia [Not Recovered/Not Resolved]
  - Joint stiffness [Not Recovered/Not Resolved]
  - Headache [Not Recovered/Not Resolved]
  - Dyspepsia [Not Recovered/Not Resolved]
  - Diarrhoea [Not Recovered/Not Resolved]
  - Pain in extremity [None]
  - Nausea [None]
  - Fatigue [Not Recovered/Not Resolved]
  - Somnolence [None]
  - Anaemia [None]
  - Somnolence [None]
  - Malaise [None]
  - Incorrect dose administered [None]
  - Product dose omission issue [None]
  - Inappropriate schedule of product administration [None]

NARRATIVE: CASE EVENT DATE: 20220809
